FAERS Safety Report 8962685 (Version 1)
Quarter: 2012Q4

REPORT INFORMATION
  Report Type: Report from Study
  Country: CZ (occurrence: CZ)
  Receive Date: 20121213
  Receipt Date: 20121213
  Transmission Date: 20130627
  Serious: Yes (Life-Threatening, Hospitalization)
  Sender: FDA-Public Use
  Company Number: CZ-PFIZER INC-2012311469

PATIENT
  Age: 66 Year
  Sex: Female

DRUGS (23)
  1. SIROLIMUS [Suspect]
     Indication: PROPHYLAXIS AGAINST RENAL TRANSPLANT REJECTION
     Dosage: 3 mg, 1x/day
     Route: 048
     Dates: start: 20060227, end: 20060509
  2. METHYLPREDNISOLONE [Suspect]
     Indication: PROPHYLAXIS AGAINST RENAL TRANSPLANT REJECTION
     Dosage: 250 mg,1 Total
     Route: 042
     Dates: start: 20040402, end: 20040402
  3. METHYLPREDNISOLONE [Suspect]
     Dosage: 125 mg,1 Total
     Route: 042
     Dates: start: 20040403
  4. DACLIZUMAB [Suspect]
     Indication: PROPHYLAXIS AGAINST RENAL TRANSPLANT REJECTION
     Dosage: 150 mg,1 Total
     Route: 042
     Dates: start: 20040402
  5. DACLIZUMAB [Suspect]
     Dosage: 75 mg,1 in 2 wk
     Route: 042
     Dates: start: 20040414
  6. MYCOPHENOLATE MOFETIL [Suspect]
     Indication: PROPHYLAXIS AGAINST RENAL TRANSPLANT REJECTION
     Dosage: 1 g, 1x/day
     Route: 048
     Dates: start: 20040402, end: 20040402
  7. MYCOPHENOLATE MOFETIL [Suspect]
     Dosage: 1 g, 2x/day
     Route: 048
     Dates: start: 20040403
  8. MYCOPHENOLATE MOFETIL [Suspect]
     Dosage: 500 mg, 2x/day
     Route: 048
     Dates: start: 20041203, end: 20051130
  9. MYCOPHENOLATE MOFETIL [Suspect]
     Indication: PROPHYLAXIS AGAINST RENAL TRANSPLANT REJECTION
     Dosage: 750 mg, 2x/day
     Route: 048
     Dates: start: 20060509
  10. MYCOPHENOLATE MOFETIL [Suspect]
     Dosage: 875 mg, 2x/day
     Route: 048
     Dates: start: 20060517
  11. CICLOSPORIN [Suspect]
     Indication: PROPHYLAXIS AGAINST RENAL TRANSPLANT REJECTION
     Dosage: 170 mg, 1x/day
     Route: 048
     Dates: start: 20040402, end: 20040402
  12. CICLOSPORIN [Suspect]
     Dosage: 50 mg, 2x/day
     Route: 048
     Dates: start: 20040403, end: 20060227
  13. CICLOSPORIN [Suspect]
     Dosage: 75 mg, 2x/day
     Route: 048
     Dates: start: 20061130
  14. PREDNISONE [Suspect]
     Indication: PROPHYLAXIS AGAINST RENAL TRANSPLANT REJECTION
     Dosage: 20 mg, 2x/day
     Route: 048
     Dates: start: 20040404, end: 20051107
  15. PREDNISONE [Suspect]
     Dosage: 5 mg, 1x/day
     Route: 048
     Dates: start: 20051130
  16. AMLODIPINE [Concomitant]
     Route: 048
  17. AMPHOTERICIN B [Concomitant]
     Route: 048
  18. FLUVASTATIN [Concomitant]
     Dosage: 40 mg, 1x/day
     Route: 048
     Dates: start: 20040422
  19. FLUVASTATIN [Concomitant]
     Dosage: UNK
     Route: 048
     Dates: end: 20050406
  20. METOPROLOL TARTRATE [Concomitant]
     Dosage: 25 mg, 2x/day
     Route: 048
     Dates: start: 20040403
  21. RAMIPRIL [Concomitant]
     Dosage: 0.63 mg, 1x/day
     Route: 048
     Dates: start: 20040406
  22. CO-TRIMOXAZOLE [Concomitant]
     Dosage: 480 mg, 1x/day
     Dates: start: 20040406, end: 20040729
  23. VALACICLOVIR [Concomitant]
     Dosage: 1500 mg, 2x/day
     Route: 048
     Dates: start: 20040403, end: 20040703

REACTIONS (4)
  - Renal cell carcinoma [Recovered/Resolved]
  - Sepsis [Recovered/Resolved]
  - Urinary tract infection [Recovered/Resolved]
  - Pyelonephritis [Recovered/Resolved]
